FAERS Safety Report 11345079 (Version 4)
Quarter: 2015Q3

REPORT INFORMATION
  Report Type: Spontaneous
  Country: JP (occurrence: JP)
  Receive Date: 20150806
  Receipt Date: 20150911
  Transmission Date: 20151125
  Serious: Yes (Hospitalization, Other)
  Sender: FDA-Public Use
  Company Number: JP-UCBSA-2015024303

PATIENT
  Age: 69 Year
  Sex: Female

DRUGS (10)
  1. KEPPRA [Suspect]
     Active Substance: LEVETIRACETAM
     Dosage: 2000 MG, ONCE DAILY (QD)
     Route: 048
     Dates: start: 20150603, end: 20150604
  2. ZOLPIDEM TARTRATE. [Concomitant]
     Active Substance: ZOLPIDEM TARTRATE
     Indication: PRODUCT USED FOR UNKNOWN INDICATION
     Route: 048
  3. KEPPRA [Suspect]
     Active Substance: LEVETIRACETAM
     Indication: EPILEPSY
     Dosage: 1000 MG, ONCE DAILY (QD)
     Route: 048
     Dates: start: 20150514, end: 20150602
  4. DEPAKENE [Concomitant]
     Active Substance: VALPROIC ACID
     Indication: PRODUCT USED FOR UNKNOWN INDICATION
     Route: 048
  5. ETIZOLAM [Concomitant]
     Active Substance: ETIZOLAM
     Indication: PRODUCT USED FOR UNKNOWN INDICATION
     Route: 048
  6. LIXIANA [Concomitant]
     Active Substance: EDOXABAN TOSILATE MONOHYDRATE
     Indication: PRODUCT USED FOR UNKNOWN INDICATION
     Route: 048
  7. FUNGIZONE [Concomitant]
     Active Substance: AMPHOTERICIN B
     Indication: PRODUCT USED FOR UNKNOWN INDICATION
     Route: 048
  8. KEPPRA [Suspect]
     Active Substance: LEVETIRACETAM
     Dosage: 3000 MG, ONCE DAILY (QD)
     Route: 048
     Dates: start: 20150605, end: 20150706
  9. LANSOPRAZOLE. [Concomitant]
     Active Substance: LANSOPRAZOLE
     Indication: PRODUCT USED FOR UNKNOWN INDICATION
     Route: 048
  10. BAKTAR [Concomitant]
     Active Substance: SULFAMETHOXAZOLE\TRIMETHOPRIM
     Indication: PRODUCT USED FOR UNKNOWN INDICATION
     Route: 048

REACTIONS (2)
  - Hemiplegia [Unknown]
  - Neutrophil count decreased [Recovered/Resolved]

NARRATIVE: CASE EVENT DATE: 20150602
